FAERS Safety Report 13140234 (Version 1)
Quarter: 2017Q1

REPORT INFORMATION
  Report Type: Spontaneous
  Country: US (occurrence: US)
  Receive Date: 20170123
  Receipt Date: 20170123
  Transmission Date: 20170428
  Serious: No
  Sender: FDA-Public Use
  Company Number: US-UNITED THERAPEUTICS-UNT-2016-017522

PATIENT
  Age: 32 Year
  Sex: Female
  Weight: 79.37 kg

DRUGS (2)
  1. OPSUMIT [Concomitant]
     Active Substance: MACITENTAN
     Indication: PRODUCT USED FOR UNKNOWN INDICATION
  2. REMODULIN [Suspect]
     Active Substance: TREPROSTINIL
     Indication: PULMONARY ARTERIAL HYPERTENSION
     Dosage: 0.071 ?G/KG, CONTINUING
     Route: 041
     Dates: start: 20160818

REACTIONS (4)
  - Injection site erythema [Unknown]
  - Injection site discharge [Unknown]
  - Injection site erosion [Unknown]
  - Injection site pain [Unknown]

NARRATIVE: CASE EVENT DATE: 201611
